FAERS Safety Report 24176890 (Version 2)
Quarter: 2024Q3

REPORT INFORMATION
  Report Type: Spontaneous
  Country: CA (occurrence: CA)
  Receive Date: 20240806
  Receipt Date: 20240812
  Transmission Date: 20241016
  Serious: Yes (Hospitalization, Other)
  Sender: ALKEM
  Company Number: CN-ALKEM LABORATORIES LIMITED-CN-ALKEM-2024-17011

PATIENT
  Age: 55 Year
  Sex: Male

DRUGS (3)
  1. CIPROFLOXACIN [Interacting]
     Active Substance: CIPROFLOXACIN
     Indication: Klebsiella infection
     Dosage: 750 MILLIGRAM, BID (TWICE DAILY (FIRST DOSE STARTS ON DAY 14 OF HOSPITALISATION)
     Route: 048
  2. ATORVASTATIN CALCIUM [Interacting]
     Active Substance: ATORVASTATIN CALCIUM
     Indication: Product used for unknown indication
     Dosage: 80 MILLIGRAM, QD (ONCE DAILY (INITIATED ON ADMISSION)
     Route: 048
  3. AMIODARONE [Interacting]
     Active Substance: AMIODARONE
     Indication: Atrial fibrillation
     Dosage: 400 MILLIGRAM, TID
     Route: 048

REACTIONS (4)
  - Drug interaction [Unknown]
  - Rhabdomyolysis [Recovering/Resolving]
  - Blood creatinine increased [Recovered/Resolved]
  - Blood creatine phosphokinase increased [Recovered/Resolved]
